FAERS Safety Report 4358243-1 (Version None)
Quarter: 2004Q2

REPORT INFORMATION
  Report Type: 
  Country: None (occurrence: None)
  Receive Date: 20040510
  Receipt Date: 20040419
  Transmission Date: 20050107
  Serious: No
  Sender: FDA-Public Use
  Company Number: A04200400182

PATIENT
  Age: 80 Year
  Sex: Male

DRUGS (4)
  1. PLAVIX [Suspect]
     Indication: MYOCARDIAL INFARCTION
     Dosage: 75 MG OD ORAL; A FEW YEARS
     Route: 048
  2. MULTI-VITAMINS [Concomitant]
  3. CEPHALOSPORIN (CEPHALOSPORIN) [Concomitant]
  4. METRONIDAZOLE [Concomitant]

REACTIONS (7)
  - DIVERTICULITIS [None]
  - GAMMA-GLUTAMYLTRANSFERASE INCREASED [None]
  - GASTROINTESTINAL DISORDER [None]
  - NUCLEAR MAGNETIC RESONANCE IMAGING ABNORMAL [None]
  - PANCREATITIS [None]
  - PANCREATOLITHIASIS [None]
  - RENAL CELL CARCINOMA STAGE UNSPECIFIED [None]
